FAERS Safety Report 12437891 (Version 1)
Quarter: 2016Q2

REPORT INFORMATION
  Report Type: Spontaneous
  Country: IT (occurrence: IT)
  Receive Date: 20160606
  Receipt Date: 20160606
  Transmission Date: 20160815
  Serious: Yes (Other)
  Sender: FDA-Public Use
  Company Number: IT-PFIZER INC-2016260444

PATIENT
  Age: 66 Year
  Sex: Female
  Weight: 83 kg

DRUGS (7)
  1. PACLITAXEL. [Suspect]
     Active Substance: PACLITAXEL
     Indication: OVARIAN CANCER
     Dosage: 110 MG, CYCLIC
     Route: 042
     Dates: start: 20131031, end: 20141022
  2. HALCION [Concomitant]
     Active Substance: TRIAZOLAM
     Route: 048
  3. DECADRON [Concomitant]
     Active Substance: DEXAMETHASONE
     Indication: INFLAMMATION
     Dosage: 20 MG, UNK
     Route: 042
     Dates: start: 20131031, end: 20141022
  4. CARBOPLATIN. [Suspect]
     Active Substance: CARBOPLATIN
     Indication: OVARIAN CANCER
     Dosage: 550 MG, CYCLIC
     Route: 042
     Dates: start: 20131031, end: 20141022
  5. ZOFRAN [Concomitant]
     Active Substance: ONDANSETRON HYDROCHLORIDE
     Indication: PROPHYLAXIS OF NAUSEA AND VOMITING
     Dosage: 8 MG, UNK
     Route: 042
     Dates: start: 20131031, end: 20141022
  6. NEORECORMON [Concomitant]
     Active Substance: ERYTHROPOIETIN
     Dosage: 1 DF, UNK
     Route: 058
  7. FERRO-GRAD [Concomitant]
     Active Substance: FERROUS SULFATE
     Dosage: 1 DF, UNK
     Route: 048

REACTIONS (3)
  - Abdominal pain upper [Recovered/Resolved]
  - Epigastric discomfort [Unknown]
  - Erythema [Recovered/Resolved]

NARRATIVE: CASE EVENT DATE: 20141022
